FAERS Safety Report 4394564-4 (Version None)
Quarter: 2004Q3

REPORT INFORMATION
  Report Type: 
  Country: None (occurrence: None)
  Receive Date: 20040712
  Receipt Date: 20000707
  Transmission Date: 20050211
  Serious: Yes (Life-Threatening, Hospitalization)
  Sender: FDA-Public Use
  Company Number: GB-ROCHE-240437

PATIENT
  Age: 13 Year
  Sex: Male
  Weight: 58 kg

DRUGS (2)
  1. ROACCUTANE [Suspect]
     Indication: ACNE
     Dosage: DRUG STOPPED FOR ONE WEEK
     Route: 048
     Dates: start: 20000207
  2. ROACCUTANE [Suspect]
     Route: 048
     Dates: start: 20000303, end: 20000628

REACTIONS (40)
  - ALOPECIA [None]
  - ANOREXIA [None]
  - ARTHRALGIA [None]
  - ASTHENIA [None]
  - BONE PAIN [None]
  - CHEILITIS [None]
  - CHEILOSIS [None]
  - DEPRESSION [None]
  - DERMATITIS EXFOLIATIVE [None]
  - DIFFICULTY IN WALKING [None]
  - DISTURBANCE IN ATTENTION [None]
  - DIZZINESS [None]
  - DRY MOUTH [None]
  - DRY SKIN [None]
  - EPISTAXIS [None]
  - EYE IRRITATION [None]
  - FATIGUE [None]
  - FLUSHING [None]
  - GUILLAIN-BARRE SYNDROME [None]
  - HEADACHE [None]
  - INFECTION [None]
  - JOINT STIFFNESS [None]
  - KERATOCONJUNCTIVITIS SICCA [None]
  - LETHARGY [None]
  - LYMPHADENOPATHY [None]
  - MALAISE [None]
  - MENTAL STATUS CHANGES [None]
  - MOOD ALTERED [None]
  - MUSCULOSKELETAL STIFFNESS [None]
  - MYALGIA [None]
  - NASAL DRYNESS [None]
  - NAUSEA [None]
  - OPTIC NEURITIS [None]
  - PANIC ATTACK [None]
  - PARAESTHESIA [None]
  - RASH [None]
  - SWELLING FACE [None]
  - TENDERNESS [None]
  - VOMITING [None]
  - WEIGHT DECREASED [None]
